FAERS Safety Report 10049486 (Version 2)
Quarter: 2014Q2

REPORT INFORMATION
  Report Type: Spontaneous
  Country: US (occurrence: US)
  Receive Date: 20140401
  Receipt Date: 20140512
  Transmission Date: 20141212
  Serious: No
  Sender: FDA-Public Use
  Company Number: US-BAYER-2014-036616

PATIENT
  Age: 18 Year
  Sex: Female

DRUGS (1)
  1. BEYAZ [Suspect]
     Indication: CONTRACEPTION
     Dosage: UNK
     Route: 048
     Dates: start: 201401

REACTIONS (3)
  - Menorrhagia [None]
  - Drug dose omission [Recovered/Resolved]
  - Abnormal withdrawal bleeding [None]
